FAERS Safety Report 8300226 (Version 7)
Quarter: 2016Q2

REPORT INFORMATION
  Report Type: Spontaneous
  Country: US (occurrence: US)
  Receive Date: 20111219
  Receipt Date: 20160405
  Transmission Date: 20160815
  Serious: Yes (Hospitalization)
  Sender: FDA-Public Use
  Company Number: US-ASTRAZENECA-2011SE40936

PATIENT
  Age: 77 Year
  Sex: Female
  Weight: 60.8 kg

DRUGS (9)
  1. CRESTOR [Suspect]
     Active Substance: ROSUVASTATIN CALCIUM
     Indication: BLOOD CHOLESTEROL ABNORMAL
     Route: 048
  2. DILTIAZEM [Concomitant]
     Active Substance: DILTIAZEM
     Indication: BLOOD PRESSURE ABNORMAL
     Route: 048
     Dates: start: 2015
  3. CITRAL OTC [Concomitant]
  4. CRESTOR [Suspect]
     Active Substance: ROSUVASTATIN CALCIUM
     Indication: BLOOD CHOLESTEROL ABNORMAL
     Route: 048
  5. LOSARTAN. [Concomitant]
     Active Substance: LOSARTAN
     Indication: BLOOD PRESSURE ABNORMAL
     Route: 048
  6. CRESTOR [Suspect]
     Active Substance: ROSUVASTATIN CALCIUM
     Indication: BLOOD CHOLESTEROL ABNORMAL
     Route: 048
  7. OMEPRAZOLE. [Suspect]
     Active Substance: OMEPRAZOLE
     Indication: ABDOMINAL DISCOMFORT
     Route: 048
  8. ALLERGY MEDICINE [Concomitant]
     Active Substance: DIPHENHYDRAMINE HYDROCHLORIDE
     Indication: HYPERSENSITIVITY
  9. VITAMINS NOS [Concomitant]
     Active Substance: VITAMINS

REACTIONS (11)
  - Drug prescribing error [Unknown]
  - Pneumonia viral [Recovered/Resolved]
  - Bone pain [Unknown]
  - Muscle spasms [Unknown]
  - Food poisoning [Unknown]
  - Confusional state [Unknown]
  - Throat irritation [Unknown]
  - Malaise [Unknown]
  - Gait disturbance [Unknown]
  - Gastric disorder [Unknown]
  - Asthma [Unknown]

NARRATIVE: CASE EVENT DATE: 201402
